FAERS Safety Report 7483179-7 (Version None)
Quarter: 2011Q2

REPORT INFORMATION
  Report Type: 
  Country: None (occurrence: None)
  Receive Date: 20110516
  Receipt Date: 20110404
  Transmission Date: 20111010
  Serious: Yes (Other)
  Sender: FDA-Public Use
  Company Number: NL-AMGEN-NLDSP2011024526

PATIENT
  Age: 83 Year
  Sex: Female

DRUGS (3)
  1. FINIMAL [Concomitant]
     Indication: HEADACHE
     Dosage: UNK
  2. ENBREL [Suspect]
     Indication: RHEUMATOID ARTHRITIS
     Dosage: 50 MG, WEEKLY
     Dates: start: 20110124, end: 20110301
  3. SERETIDE [Concomitant]
     Dosage: UNK

REACTIONS (4)
  - BLOOD PRESSURE FLUCTUATION [None]
  - CARDIAC FAILURE [None]
  - OEDEMA PERIPHERAL [None]
  - EYE INFECTION [None]
